FAERS Safety Report 21728394 (Version 1)
Quarter: 2022Q4

REPORT INFORMATION
  Report Type: Spontaneous
  Country: HR (occurrence: HR)
  Receive Date: 20221214
  Receipt Date: 20221214
  Transmission Date: 20230112
  Serious: Yes (Hospitalization, Other)
  Sender: FDA-Public Use
  Company Number: HR-BAYER-2022P026807

PATIENT
  Age: 70 Year
  Sex: Male

DRUGS (4)
  1. NEXAVAR [Suspect]
     Active Substance: SORAFENIB
     Indication: Renal cancer metastatic
     Dosage: UKNOWN
  2. SUNITINIB [Suspect]
     Active Substance: SUNITINIB
     Dosage: 50 MG WAS STARTED, USING A SCHEMA OF 4 WEEKS OF DRUG INTAKE FOLLOWED BY A 2-WEEK PAUSE
     Dates: start: 202110
  3. SUNITINIB [Suspect]
     Active Substance: SUNITINIB
     Dosage: DOSE WAS REDUCED TO 37.5 MG
     Dates: start: 202204
  4. ASPIRIN [Concomitant]
     Active Substance: ASPIRIN

REACTIONS (10)
  - Cardiac disorder [None]
  - Angiopathy [None]
  - Myocardial infarction [None]
  - Chest pain [None]
  - Cold sweat [None]
  - Acute coronary syndrome [None]
  - Thrombosis [None]
  - Hemiplegia [None]
  - Pyrexia [None]
  - Blood creatinine increased [None]
